FAERS Safety Report 9367235 (Version 2)
Quarter: 2013Q3

REPORT INFORMATION
  Report Type: Spontaneous
  Country: US (occurrence: US)
  Receive Date: 20130625
  Receipt Date: 20130830
  Transmission Date: 20140515
  Serious: Yes (Other)
  Sender: FDA-Public Use
  Company Number: US-PAR PHARMACEUTICAL, INC-2013SCPR005993

PATIENT
  Sex: 0

DRUGS (1)
  1. METOCLOPRAMIDE [Suspect]
     Indication: PRODUCT USED FOR UNKNOWN INDICATION
     Dosage: UNK UNK, UNKNOWN
     Route: 065
     Dates: start: 2005, end: 200904

REACTIONS (6)
  - Haemorrhage [Recovered/Resolved]
  - Carpal tunnel syndrome [Unknown]
  - Cervical radiculopathy [Unknown]
  - Lumbar radiculopathy [Unknown]
  - Lumbar spinal stenosis [Unknown]
  - Tremor [Recovering/Resolving]
